FAERS Safety Report 10043022 (Version 2)
Quarter: 2014Q2

REPORT INFORMATION
  Report Type: Report from Study
  Country: US (occurrence: US)
  Receive Date: 20140328
  Receipt Date: 20140526
  Transmission Date: 20141212
  Serious: Yes (Hospitalization)
  Sender: FDA-Public Use
  Company Number: US-BIOGENIDEC-2014BI027319

PATIENT
  Sex: Female
  Weight: 52 kg

DRUGS (21)
  1. AVONEX [Suspect]
     Indication: RELAPSING-REMITTING MULTIPLE SCLEROSIS
     Route: 030
     Dates: start: 20100401
  2. AVONEX [Suspect]
     Indication: RELAPSING-REMITTING MULTIPLE SCLEROSIS
     Route: 030
     Dates: start: 20100423, end: 20121115
  3. AVONEX [Suspect]
     Indication: RELAPSING-REMITTING MULTIPLE SCLEROSIS
     Route: 030
     Dates: start: 201212
  4. AVONEX [Suspect]
     Indication: RELAPSING-REMITTING MULTIPLE SCLEROSIS
     Route: 030
     Dates: start: 20130208
  5. AVONEX [Suspect]
     Indication: RELAPSING-REMITTING MULTIPLE SCLEROSIS
     Route: 030
     Dates: start: 20131109
  6. GILENYA [Concomitant]
     Route: 048
     Dates: start: 20130827
  7. AUBAGIO [Concomitant]
     Dates: start: 20121114, end: 20121217
  8. CYANOCOBALAMINE [Concomitant]
     Route: 048
  9. ADVIL [Concomitant]
     Route: 048
  10. CHOLECALCIFEROL [Concomitant]
     Route: 048
  11. PREDNISONE [Concomitant]
     Dates: start: 2012
  12. GAS-X [Concomitant]
  13. FLEXERIL [Concomitant]
     Indication: MUSCLE SPASMS
     Route: 048
     Dates: start: 201401
  14. PREVACID [Concomitant]
     Route: 048
  15. QUASENSE [Concomitant]
     Route: 048
  16. COZAAR [Concomitant]
     Route: 048
  17. HYDROCHLOROTHIAZIDE [Concomitant]
     Route: 048
  18. SINEMET [Concomitant]
     Route: 048
  19. COMBIGAN [Concomitant]
     Route: 047
  20. XARELTO [Concomitant]
     Route: 048
  21. ARICEPT [Concomitant]
     Route: 048

REACTIONS (5)
  - Hepatic mass [Unknown]
  - Focal nodular hyperplasia [Unknown]
  - Convulsion [Unknown]
  - Cholelithiasis [Unknown]
  - Bile duct stone [Unknown]
